FAERS Safety Report 4749490-5 (Version None)
Quarter: 2005Q3

REPORT INFORMATION
  Report Type: 
  Country: None (occurrence: None)
  Receive Date: 20050822
  Receipt Date: 20050809
  Transmission Date: 20060218
  Serious: Yes (Other)
  Sender: FDA-Public Use
  Company Number: PHBS2005BR11826

PATIENT
  Sex: Female

DRUGS (4)
  1. TAMOXIFEN CITRATE [Concomitant]
     Dosage: UNK, UNK
     Route: 065
     Dates: start: 20020101, end: 20050101
  2. TAMOPLEX [Concomitant]
     Route: 065
     Dates: start: 20050101
  3. CHEMOTHERAPEUTICS,OTHER [Concomitant]
     Route: 065
     Dates: start: 20050101
  4. ZOMETA [Suspect]
     Indication: BREAST CANCER
     Dosage: 4 MG, QMO
     Route: 042
     Dates: start: 20030801, end: 20050701

REACTIONS (5)
  - ASEPTIC NECROSIS BONE [None]
  - BONE DISORDER [None]
  - DENTAL TREATMENT [None]
  - MALIGNANT NEOPLASM PROGRESSION [None]
  - PLASTIC SURGERY [None]
